FAERS Safety Report 12185188 (Version 1)
Quarter: 2016Q1

REPORT INFORMATION
  Report Type: Spontaneous
  Country: US (occurrence: US)
  Receive Date: 20160316
  Receipt Date: 20160316
  Transmission Date: 20160526
  Serious: No
  Sender: FDA-Public Use
  Company Number: US-MEDA-2016030024

PATIENT
  Sex: Male

DRUGS (1)
  1. DEMADEX [Suspect]
     Active Substance: TORSEMIDE

REACTIONS (1)
  - Drug hypersensitivity [Unknown]
